FAERS Safety Report 21974034 (Version 1)
Quarter: 2023Q1

REPORT INFORMATION
  Report Type: Spontaneous
  Country: BE (occurrence: BE)
  Receive Date: 20230209
  Receipt Date: 20230209
  Transmission Date: 20230418
  Serious: Yes (Hospitalization)
  Sender: FDA-Public Use
  Company Number: None

PATIENT
  Age: 72 Year
  Sex: Female
  Weight: 86 kg

DRUGS (16)
  1. ZOLEDRONIC ACID [Suspect]
     Active Substance: ZOLEDRONIC ACID
     Indication: Product used for unknown indication
     Dosage: UNK
     Route: 065
     Dates: end: 20221118
  2. LORAZEPAM EG [Concomitant]
     Dosage: 2.5 MILLIGRAM, QD
     Route: 065
  3. FUCICORT LIPID [Concomitant]
     Dosage: BID 1 APPLICATION DERMAL-LEVEL OF THE TEAR MOUTH
     Route: 061
  4. LORATADINE [Concomitant]
     Active Substance: LORATADINE
     Dosage: 10 MILLIGRAM, QD
     Route: 065
  5. FENTANYL [Concomitant]
     Active Substance: FENTANYL
     Dosage: 1 DOSAGE FORM, Q3D, 50MG/HR, 1X/3DAYS 1 PATCH
     Route: 065
  6. OXYCODONE HYDROCHLORIDE [Concomitant]
     Active Substance: OXYCODONE HYDROCHLORIDE
     Dosage: 20 MILLIGRAM, BID, EVERY 12 HOURS 1 TABLET
     Route: 065
  7. LORAZEPAM [Concomitant]
     Active Substance: LORAZEPAM
     Dosage: 1 MILLIGRAM, QD
     Route: 065
  8. LYRICA [Concomitant]
     Active Substance: PREGABALIN
     Dosage: 300 MILLIGRAM, QD
     Route: 065
  9. PARACETAMOL TEVA [Concomitant]
     Dosage: DAILY EVERY 6 HOURS 1 TABLET
     Route: 065
  10. STEOVIT FORTE [Concomitant]
     Dosage: DAILY 1 CHEWABLE TABLET, 1000 MG/800 U.I
     Route: 065
  11. OMEPRAZOL APOTEX [Concomitant]
     Dosage: 20 MILLIGRAM, QD
     Route: 065
  12. CANDESARTAN EG [Concomitant]
     Dosage: 16 MILLIGRAM, QD
     Route: 065
  13. MOTILIUM [Concomitant]
     Active Substance: DOMPERIDONE
     Indication: Nausea
     Dosage: Q8H 1TAB FOR NAUSEA HALF HOUR BEFORE MEAL MAX 3/D
     Route: 065
  14. ATARAX [Concomitant]
     Active Substance: HYDROXYZINE HYDROCHLORIDE
     Dosage: 25 MILLIGRAM, QD
     Route: 065
  15. ARIMIDEX [Concomitant]
     Active Substance: ANASTROZOLE
     Dosage: 1 MILLIGRAM, QD
     Route: 065
  16. LORAZETOP [Concomitant]
     Dosage: 2.5 MILLIGRAM, QD
     Route: 065

REACTIONS (2)
  - Oxygen saturation decreased [Recovered/Resolved]
  - Chest pain [Recovered/Resolved]

NARRATIVE: CASE EVENT DATE: 20221118
